FAERS Safety Report 23908994 (Version 3)
Quarter: 2024Q2

REPORT INFORMATION
  Report Type: Report from Study
  Country: FR (occurrence: FR)
  Receive Date: 20240528
  Receipt Date: 20240626
  Transmission Date: 20240716
  Serious: Yes (Other)
  Sender: FDA-Public Use
  Company Number: FR-002147023-NVSC2023FR271255

PATIENT
  Age: 50 Year
  Sex: Female
  Weight: 72 kg

DRUGS (2)
  1. VIJOICE [Suspect]
     Active Substance: ALPELISIB
     Indication: PIK3CA related overgrowth spectrum
     Dosage: 250 MG, QD
     Route: 048
     Dates: start: 20220517, end: 20220630
  2. VIJOICE [Suspect]
     Active Substance: ALPELISIB
     Indication: Neoplasm malignant

REACTIONS (11)
  - Type IV hypersensitivity reaction [Unknown]
  - Dysphagia [Recovered/Resolved]
  - Erythema [Recovered/Resolved]
  - Oedema [Unknown]
  - Muscle spasms [Unknown]
  - Swelling [Unknown]
  - Oropharyngeal discomfort [Unknown]
  - Urticaria [Unknown]
  - Lymphadenopathy [Recovered/Resolved]
  - Rash [Recovered/Resolved]
  - Rash maculo-papular [Recovered/Resolved]

NARRATIVE: CASE EVENT DATE: 20220630
